FAERS Safety Report 4453878-X (Version None)
Quarter: 2004Q3

REPORT INFORMATION
  Report Type: 
  Country: None (occurrence: None)
  Receive Date: 20040920
  Receipt Date: 20040806
  Transmission Date: 20050211
  Serious: Yes (Disabling)
  Sender: FDA-Public Use
  Company Number: US-MERCK-0408USA00614

PATIENT
  Age: 25 Year
  Sex: Female
  Weight: 91 kg

DRUGS (2)
  1. VIOXX [Suspect]
     Indication: ARTHRALGIA
     Route: 048
     Dates: start: 20040717, end: 20040724
  2. VIOXX [Suspect]
     Route: 048
     Dates: start: 20040712, end: 20040716

REACTIONS (11)
  - DERMATOMYOSITIS [None]
  - DYSPNOEA [None]
  - FACE OEDEMA [None]
  - HEART RATE IRREGULAR [None]
  - HEPATIC ENZYME INCREASED [None]
  - INSOMNIA [None]
  - MUSCLE SPASMS [None]
  - OEDEMA PERIPHERAL [None]
  - PAIN [None]
  - PYREXIA [None]
  - URINARY RETENTION [None]
